FAERS Safety Report 4473219-1 (Version None)
Quarter: 2004Q4

REPORT INFORMATION
  Report Type: 
  Country: None (occurrence: None)
  Receive Date: 20041008
  Receipt Date: 20041001
  Transmission Date: 20050328
  Serious: Yes (Death)
  Sender: FDA-Public Use
  Company Number: 2004AP05071

PATIENT

DRUGS (1)
  1. TENORMIN [Suspect]

REACTIONS (4)
  - BRADYCARDIA [None]
  - DRUG EXPOSURE VIA BREAST MILK [None]
  - HYPOTHERMIA [None]
  - NERVOUS SYSTEM DISORDER [None]
